FAERS Safety Report 7099298-3 (Version None)
Quarter: 2010Q4

REPORT INFORMATION
  Report Type: 
  Country: None (occurrence: None)
  Receive Date: 20101112
  Receipt Date: 20101102
  Transmission Date: 20110411
  Serious: Yes (Other)
  Sender: FDA-Public Use
  Company Number: PHHY2010JP74633

PATIENT
  Sex: Male

DRUGS (1)
  1. TEGRETOL [Suspect]
     Indication: AGITATION
     Dosage: 400 MG, QD
     Route: 048

REACTIONS (4)
  - FALL [None]
  - GAIT DISTURBANCE [None]
  - INJURY [None]
  - TREMOR [None]
